FAERS Safety Report 9494981 (Version 3)
Quarter: 2019Q4

REPORT INFORMATION
  Report Type: Report from Study
  Country: US (occurrence: US)
  Receive Date: 20130903
  Receipt Date: 20191016
  Transmission Date: 20200122
  Serious: Yes (Other)
  Sender: FDA-Public Use
  Company Number: US-SANOFI-AVENTIS-2013SA086692

PATIENT
  Age: 53 Year
  Sex: Female

DRUGS (1)
  1. TERIFLUNOMIDE. [Suspect]
     Active Substance: TERIFLUNOMIDE
     Indication: MULTIPLE SCLEROSIS
     Dosage: 14 MG,QD
     Route: 048
     Dates: start: 20130813, end: 20130814

REACTIONS (4)
  - Unevaluable event [Unknown]
  - Flushing [Unknown]
  - Memory impairment [Not Recovered/Not Resolved]
  - Swelling face [Unknown]
